FAERS Safety Report 5160436-0 (Version None)
Quarter: 2006Q4

REPORT INFORMATION
  Report Type: 
  Country: None (occurrence: None)
  Receive Date: 20060919
  Receipt Date: 20060810
  Transmission Date: 20070319
  Serious: No
  Sender: FDA-Public Use
  Company Number: 2006US001831

PATIENT
  Age: 83 Year
  Sex: Male

DRUGS (2)
  1. VESICARE [Suspect]
     Indication: HYPERTONIC BLADDER
     Dosage: 5MG ORAL
     Route: 048
     Dates: start: 20060727
  2. NORVASC [Concomitant]

REACTIONS (1)
  - MUSCLE SPASMS [None]
